FAERS Safety Report 13256160 (Version 1)
Quarter: 2017Q1

REPORT INFORMATION
  Report Type: Spontaneous
  Country: GB (occurrence: GB)
  Receive Date: 20170221
  Receipt Date: 20170221
  Transmission Date: 20170428
  Serious: Yes (Disabling)
  Sender: FDA-Public Use
  Company Number: GB-TEVA-740952ACC

PATIENT
  Age: 14 Year
  Sex: Female
  Weight: 25 kg

DRUGS (2)
  1. ERYTHROMYCIN ETHYLSUCCINATE. [Suspect]
     Active Substance: ERYTHROMYCIN ETHYLSUCCINATE
     Dates: start: 20170201
  2. FLUCLOXACILLIN [Concomitant]
     Active Substance: FLUCLOXACILLIN
     Dosage: 20 ML DAILY;
     Dates: start: 20170201

REACTIONS (2)
  - Nausea [Recovering/Resolving]
  - Dizziness [Recovering/Resolving]

NARRATIVE: CASE EVENT DATE: 20170201
